FAERS Safety Report 5268614-7 (Version None)
Quarter: 2007Q1

REPORT INFORMATION
  Report Type: 
  Country: None (occurrence: None)
  Receive Date: 20070315
  Receipt Date: 20070315
  Transmission Date: 20070707
  Serious: Yes (Life-Threatening, Hospitalization, Other)
  Sender: FDA-Public Use
  Company Number: None

PATIENT
  Age: 72 Year
  Sex: Male
  Weight: 44.4525 kg

DRUGS (1)
  1. FOSAMAX [Suspect]
     Indication: BONE DISORDER
     Dosage: DAILY PO
     Route: 048
     Dates: start: 20060101, end: 20070313

REACTIONS (9)
  - ANAEMIA [None]
  - CEREBROVASCULAR ACCIDENT [None]
  - DRUG ADMINISTRATION ERROR [None]
  - DYSPHAGIA [None]
  - GENERAL PHYSICAL HEALTH DETERIORATION [None]
  - OESOPHAGEAL HAEMORRHAGE [None]
  - PHARYNGOLARYNGEAL PAIN [None]
  - THROMBOSIS [None]
  - TRANSIENT ISCHAEMIC ATTACK [None]
